FAERS Safety Report 10042583 (Version 1)
Quarter: 2014Q1

REPORT INFORMATION
  Report Type: Spontaneous
  Country: US (occurrence: None)
  Receive Date: 20140325
  Receipt Date: 20140325
  Transmission Date: 20141002
  Serious: Yes (Other)
  Sender: FDA-Public Use
  Company Number: 2014-US-003263

PATIENT
  Age: 55 Year
  Sex: Male
  Weight: 103.4 kg

DRUGS (6)
  1. XYREM [Suspect]
     Indication: NARCOLEPSY
     Route: 048
     Dates: start: 201109
  2. XYREM [Suspect]
     Indication: CATAPLEXY
     Route: 048
     Dates: start: 201109
  3. XYREM [Suspect]
     Indication: NARCOLEPSY
     Route: 048
     Dates: start: 201109
  4. XYREM [Suspect]
     Indication: CATAPLEXY
     Route: 048
     Dates: start: 201109
  5. METOPROLOL (METOPROLOL TARTRATE) [Suspect]
     Indication: TACHYCARDIA
  6. CARDIA [Suspect]
     Indication: PRODUCT USED FOR UNKNOWN INDICATION

REACTIONS (14)
  - Atrial fibrillation [None]
  - Arrhythmia [None]
  - Hypertension [None]
  - Panic attack [None]
  - Anxiety [None]
  - Blood glucose increased [None]
  - Paraesthesia [None]
  - Neuropathy peripheral [None]
  - Movement disorder [None]
  - Abdominal distension [None]
  - Thinking abnormal [None]
  - Decreased appetite [None]
  - Fatigue [None]
  - Weight decreased [None]
